FAERS Safety Report 24779468 (Version 1)
Quarter: 2024Q4

REPORT INFORMATION
  Report Type: Spontaneous
  Country: US (occurrence: None)
  Receive Date: 20241226
  Receipt Date: 20241226
  Transmission Date: 20250114
  Serious: Yes (Hospitalization)
  Sender: Public
  Company Number: None

PATIENT
  Sex: Female

DRUGS (11)
  1. KESIMPTA [Suspect]
     Active Substance: OFATUMUMAB
     Dosage: FREQUENCY : MONTHLY;?
     Route: 058
     Dates: start: 20211230
  2. ADDERALL TAB 20MG [Concomitant]
  3. AMPHET/DEXTR TAB 10MG [Concomitant]
  4. BACLOFEN [Concomitant]
     Active Substance: BACLOFEN
  5. BUTALBITAL/ACETAMINOPHEN/ [Concomitant]
  6. CELECOXIB CAP 200MG [Concomitant]
  7. DEXAMETH PHO INJ 20MG/5ML [Concomitant]
  8. DICYCLOMINE CAP 1 0MG [Concomitant]
  9. FLUTICASONE [Concomitant]
     Active Substance: FLUTICASONE
  10. GABAPENTI N TAB 600MG [Concomitant]
  11. ACETAMINOPHEN\HYDROCODONE [Concomitant]
     Active Substance: ACETAMINOPHEN\HYDROCODONE

REACTIONS (6)
  - Multiple sclerosis relapse [None]
  - Fatigue [None]
  - Headache [None]
  - Asthenia [None]
  - Cognitive disorder [None]
  - Dysphemia [None]
